FAERS Safety Report 7708809-3 (Version None)
Quarter: 2011Q3

REPORT INFORMATION
  Report Type: 
  Country: None (occurrence: None)
  Receive Date: 20110819
  Receipt Date: 20110804
  Transmission Date: 20111222
  Serious: Yes (Life-Threatening, Hospitalization, Other)
  Sender: FDA-Public Use
  Company Number: 2006S1005581

PATIENT
  Age: 52 Year
  Sex: Female

DRUGS (7)
  1. CATAPRES-TTS-1 [Concomitant]
  2. PHENERGAN HCL [Concomitant]
  3. PROZAC [Concomitant]
  4. DETROL [Concomitant]
  5. KLONOPIN [Concomitant]
  6. DIOVAN [Concomitant]
  7. PHOSPHOSODA FLAVOR NOT SPECIFIED [Suspect]
     Indication: COLONOSCOPY
     Dosage: PO
     Route: 048
     Dates: start: 20060601

REACTIONS (5)
  - FORMICATION [None]
  - RENAL FAILURE ACUTE [None]
  - METABOLIC ACIDOSIS [None]
  - BLOOD PHOSPHORUS ABNORMAL [None]
  - PARAESTHESIA [None]
